FAERS Safety Report 20355359 (Version 3)
Quarter: 2022Q1

REPORT INFORMATION
  Report Type: Report from Study
  Country: None (occurrence: ES)
  Receive Date: 20220120
  Receipt Date: 20220311
  Transmission Date: 20220423
  Serious: Yes (Death, Other)
  Sender: FDA-Public Use
  Company Number: ES-AKCEA THERAPEUTICS, INC.-2021IS002033

PATIENT
  Age: 81 Year
  Sex: Male

DRUGS (3)
  1. TEGSEDI [Suspect]
     Active Substance: INOTERSEN SODIUM
     Indication: Hereditary neuropathic amyloidosis
     Route: 058
  2. DEVICE [Suspect]
     Active Substance: DEVICE
  3. RISPERIDONE [Concomitant]
     Active Substance: RISPERIDONE
     Route: 065
     Dates: start: 2022

REACTIONS (12)
  - Hallucination [Unknown]
  - Monocyte percentage increased [Unknown]
  - Mean cell volume increased [Unknown]
  - Mean cell haemoglobin increased [Unknown]
  - Mean cell haemoglobin concentration decreased [Unknown]
  - Lymphocyte percentage decreased [Unknown]
  - Platelet count decreased [Unknown]
  - Hypokalaemia [Unknown]
  - Hypersomnia [Unknown]
  - General physical health deterioration [Unknown]
  - Malaise [Unknown]
  - Death [Fatal]

NARRATIVE: CASE EVENT DATE: 20211228
